FAERS Safety Report 6184878-X (Version None)
Quarter: 2009Q2

REPORT INFORMATION
  Report Type: 
  Country: None (occurrence: None)
  Receive Date: 20090508
  Receipt Date: 20090506
  Transmission Date: 20091009
  Serious: Yes (Other)
  Sender: FDA-Public Use
  Company Number: US-MERCK-0905USA00635

PATIENT
  Age: 81 Year
  Sex: Male
  Weight: 81 kg

DRUGS (8)
  1. ZETIA [Suspect]
     Indication: BLOOD CHOLESTEROL INCREASED
     Route: 048
     Dates: start: 20040101
  2. LIPITOR [Suspect]
     Indication: BLOOD CHOLESTEROL INCREASED
     Route: 048
     Dates: start: 20040101
  3. GLUCOTROL [Concomitant]
     Route: 065
  4. LASIX [Concomitant]
     Route: 065
  5. AMIODARONA [Concomitant]
     Route: 065
  6. WARFARIN [Concomitant]
     Route: 065
  7. ARICEPT [Concomitant]
     Route: 065
  8. CORTISONE [Concomitant]
     Route: 065

REACTIONS (4)
  - BLOOD CHOLESTEROL INCREASED [None]
  - BODY HEIGHT DECREASED [None]
  - PROSTATIC SPECIFIC ANTIGEN INCREASED [None]
  - WEIGHT INCREASED [None]
